FAERS Safety Report 9418034 (Version 5)
Quarter: 2014Q1

REPORT INFORMATION
  Report Type: Report from Study
  Country: US (occurrence: US)
  Receive Date: 20130724
  Receipt Date: 20140319
  Transmission Date: 20141002
  Serious: Yes (Hospitalization)
  Sender: FDA-Public Use
  Company Number: US-ROCHE-1251185

PATIENT
  Age: 48 Year
  Sex: Female

DRUGS (10)
  1. TRASTUZUMAB EMTANSINE [Suspect]
     Indication: BREAST CANCER METASTATIC
     Dosage: LAST DOSE RECEIVED ON:26/JUN/2013
     Route: 042
     Dates: start: 20130222
  2. PERTUZUMAB [Suspect]
     Indication: BREAST CANCER METASTATIC
     Dosage: LAST DOSE RECEIVED ON:26/JUN/2013
     Route: 042
     Dates: start: 20130222
  3. CYMBALTA [Concomitant]
     Indication: NEUROPATHY PERIPHERAL
     Route: 065
     Dates: start: 20120524
  4. NIFEREX (UNITED STATES) [Concomitant]
     Route: 065
     Dates: start: 20130108
  5. VITAMIN D3 [Concomitant]
     Route: 065
     Dates: start: 20100715
  6. FONDAPARINUX [Concomitant]
     Indication: DEEP VEIN THROMBOSIS
     Route: 065
     Dates: start: 20130715, end: 20130725
  7. BACTRIM DS [Concomitant]
     Indication: PROPHYLAXIS
     Route: 065
     Dates: start: 20130725, end: 20130829
  8. PANTOPRAZOLE [Concomitant]
     Route: 065
     Dates: start: 20130725, end: 20130830
  9. LISINOPRIL [Concomitant]
     Route: 065
     Dates: start: 20130725, end: 20130830
  10. SENNA [Concomitant]
     Route: 065
     Dates: start: 20130725, end: 20130830

REACTIONS (1)
  - Central nervous system haemorrhage [Recovered/Resolved]
